FAERS Safety Report 12911004 (Version 1)
Quarter: 2016Q4

REPORT INFORMATION
  Report Type: Spontaneous
  Country: US (occurrence: US)
  Receive Date: 20161104
  Receipt Date: 20161104
  Transmission Date: 20170207
  Serious: Yes (Hospitalization, Other)
  Sender: FDA-Public Use
  Company Number: US-009507513-1610USA014844

PATIENT
  Age: 62 Year
  Sex: Male

DRUGS (1)
  1. STROMECTOL [Suspect]
     Active Substance: IVERMECTIN
     Indication: STRONGYLOIDIASIS
     Dosage: 200 MICROGRAM PER KILOGRAM (1200 MICROGRAM), QD
     Route: 048

REACTIONS (1)
  - Mazzotti reaction [Recovered/Resolved]
